FAERS Safety Report 7837768-8 (Version None)
Quarter: 2011Q4

REPORT INFORMATION
  Report Type: 
  Country: None (occurrence: None)
  Receive Date: 20111024
  Receipt Date: 20100618
  Transmission Date: 20120403
  Serious: No
  Sender: FDA-Public Use
  Company Number: US-BAYER-201026023NA

PATIENT
  Age: 82 Year
  Sex: Male

DRUGS (12)
  1. LISINOPRIL [Concomitant]
  2. PLAVIX [Concomitant]
  3. OXYBUTYNIN [Concomitant]
  4. ESGIC [Concomitant]
  5. CIPROFLOXACIN [Suspect]
     Indication: CYSTITIS
     Dosage: 250 MG, BID
     Route: 048
     Dates: start: 20100603, end: 20100611
  6. LITHIUM CITRATE [Concomitant]
  7. ZOLPIDEM [Concomitant]
  8. AMLODIPINE [Concomitant]
  9. ARICEPT [Concomitant]
  10. RANITIDINE [Concomitant]
  11. FLOMAX [Concomitant]
  12. METOPROLOL TARTRATE [Concomitant]

REACTIONS (2)
  - PARAESTHESIA [None]
  - BURNING SENSATION [None]
